FAERS Safety Report 5308422-1 (Version None)
Quarter: 2007Q2

REPORT INFORMATION
  Report Type: 
  Country: None (occurrence: None)
  Receive Date: 20070423
  Receipt Date: 20070423
  Transmission Date: 20071010
  Serious: Yes (Other)
  Sender: FDA-Public Use
  Company Number: None

PATIENT
  Age: 40 Year
  Sex: Female

DRUGS (1)
  1. PROPYLTHIOURACIL [Suspect]
     Dosage: 150 MG  LOADING DOSE  PO
     Route: 048
     Dates: start: 20070301, end: 20070301

REACTIONS (3)
  - DISCOMFORT [None]
  - PHOTOPHOBIA [None]
  - VISUAL DISTURBANCE [None]
